FAERS Safety Report 9362834 (Version 1)
Quarter: 2013Q2

REPORT INFORMATION
  Report Type: Spontaneous
  Country: GB (occurrence: GB)
  Receive Date: 20130624
  Receipt Date: 20130624
  Transmission Date: 20140414
  Serious: Yes (Other)
  Sender: FDA-Public Use
  Company Number: GB-009507513-1306GBR008670

PATIENT
  Age: 59 Year
  Sex: Female
  Weight: 70 kg

DRUGS (2)
  1. LORATADINE [Suspect]
     Indication: SEASONAL ALLERGY
     Dosage: 10 MG, QD
     Route: 048
     Dates: start: 20130525, end: 20130603
  2. PROBIOTICS (UNSPECIFIED) [Suspect]
     Dosage: UNK
     Route: 048
     Dates: start: 20130501

REACTIONS (2)
  - Middle insomnia [Unknown]
  - Palpitations [Recovering/Resolving]
